FAERS Safety Report 4733063-4 (Version None)
Quarter: 2005Q3

REPORT INFORMATION
  Report Type: 
  Country: None (occurrence: None)
  Receive Date: 20050728
  Receipt Date: 20050721
  Transmission Date: 20060218
  Serious: Yes (Hospitalization, Other)
  Sender: FDA-Public Use
  Company Number: SEWYE852822JUL05

PATIENT
  Age: 68 Year
  Sex: Male

DRUGS (1)
  1. RAPAMUNE [Suspect]
     Indication: IMMUNOSUPPRESSION
     Dosage: 5 MG 1 X PER 1 DAY
     Route: 048
     Dates: start: 20050115

REACTIONS (2)
  - DRUG RESISTANCE [None]
  - KIDNEY TRANSPLANT REJECTION [None]
